FAERS Safety Report 16361643 (Version 1)
Quarter: 2019Q2

REPORT INFORMATION
  Report Type: Report from Study
  Country: None (occurrence: US)
  Receive Date: 20190528
  Receipt Date: 20190528
  Transmission Date: 20190711
  Serious: Yes (Other)
  Sender: FDA-Public Use
  Company Number: US-ABBVIE-19S-163-2796285-00

PATIENT
  Sex: Male

DRUGS (1)
  1. CREON [Suspect]
     Active Substance: PANCRELIPASE AMYLASE\PANCRELIPASE LIPASE\PANCRELIPASE PROTEASE
     Indication: PRODUCT USED FOR UNKNOWN INDICATION
     Route: 048

REACTIONS (12)
  - Large intestine polyp [Unknown]
  - Emphysema [Unknown]
  - Hernia repair [Unknown]
  - Hypertension [Unknown]
  - Alcoholic pancreatitis [Unknown]
  - Pneumonia aspiration [Unknown]
  - Sleep apnoea syndrome [Unknown]
  - Eye operation [Unknown]
  - Spinal operation [Unknown]
  - Pulmonary mass [Unknown]
  - Adenoidectomy [Unknown]
  - Decreased appetite [Unknown]
